FAERS Safety Report 25836943 (Version 1)
Quarter: 2025Q3

REPORT INFORMATION
  Report Type: Spontaneous
  Country: EU (occurrence: EU)
  Receive Date: 20250923
  Receipt Date: 20250923
  Transmission Date: 20251021
  Serious: Yes (Other)
  Sender: ACCORD
  Company Number: EU-Accord-504662

PATIENT
  Age: 49 Year
  Sex: Female

DRUGS (1)
  1. TERIFLUNOMIDE [Suspect]
     Active Substance: TERIFLUNOMIDE
     Indication: Relapsing-remitting multiple sclerosis

REACTIONS (2)
  - Acute motor-sensory axonal neuropathy [Unknown]
  - Carpal tunnel syndrome [Unknown]
